FAERS Safety Report 9639975 (Version 1)
Quarter: 2013Q4

REPORT INFORMATION
  Report Type: Spontaneous
  Country: US (occurrence: None)
  Receive Date: 20131021
  Receipt Date: 20131021
  Transmission Date: 20140711
  Serious: No
  Sender: FDA-Public Use
  Company Number: None

PATIENT
  Age: 79 Year
  Sex: Female

DRUGS (6)
  1. CEPHALEXIN 500 MG UNKNOWN [Suspect]
     Indication: URINARY TRACT INFECTION
     Route: 048
     Dates: start: 20130815
  2. DILTIAZEM [Concomitant]
  3. FUROSEMIDE [Concomitant]
  4. POTASSIUM [Concomitant]
  5. MULTI VITAMIN [Concomitant]
  6. ADVIL [Concomitant]

REACTIONS (3)
  - Vomiting projectile [None]
  - Diarrhoea [None]
  - Product odour abnormal [None]
